FAERS Safety Report 7340510-0 (Version None)
Quarter: 2011Q1

REPORT INFORMATION
  Report Type: 
  Country: None (occurrence: None)
  Receive Date: 20110309
  Receipt Date: 20110223
  Transmission Date: 20110831
  Serious: Yes (Disabling)
  Sender: FDA-Public Use
  Company Number: PHHY2011US15646

PATIENT
  Sex: Female

DRUGS (5)
  1. ACIPHEX [Concomitant]
  2. VITAMIN D [Concomitant]
     Dosage: 2000 U, UNK
  3. BACLOFEN [Concomitant]
  4. EXELON [Suspect]
     Dosage: 4.6 MG, QD
  5. LANTUS [Concomitant]
     Indication: DIABETES MELLITUS

REACTIONS (2)
  - MALAISE [None]
  - HYPOKINESIA [None]
